FAERS Safety Report 6973972-9 (Version None)
Quarter: 2010Q3

REPORT INFORMATION
  Report Type: 
  Country: None (occurrence: None)
  Receive Date: 20100909
  Receipt Date: 20100906
  Transmission Date: 20110219
  Serious: Yes (Other)
  Sender: FDA-Public Use
  Company Number: GXKR2010DE10088

PATIENT
  Sex: Male

DRUGS (9)
  1. PARACETAMOL 1A PHARMA (NGX) [Suspect]
     Dosage: 20-40 TABLETS MONTHLY
     Route: 048
  2. PARACETAMOL HEXAL (NGX) [Suspect]
  3. PARACETAMOL-RATIOPHARM [Suspect]
  4. PARACETAMOL ^BERLIN-CHEMIE^ [Suspect]
  5. ISCOVER [Concomitant]
  6. METFORMIN [Concomitant]
  7. KEPPRA [Concomitant]
  8. CARVEDILOL [Concomitant]
  9. RAMIPRIL [Concomitant]

REACTIONS (1)
  - DRUG ABUSE [None]
